FAERS Safety Report 24329663 (Version 1)
Quarter: 2024Q3

REPORT INFORMATION
  Report Type: Spontaneous
  Country: US (occurrence: US)
  Receive Date: 20240917
  Receipt Date: 20240917
  Transmission Date: 20241017
  Serious: No
  Sender: SANOFI AVENTIS
  Company Number: US-SA-2024SA267165

PATIENT
  Age: 73 Year
  Sex: Female
  Weight: 94.55 kg

DRUGS (10)
  1. DUPIXENT [Suspect]
     Active Substance: DUPILUMAB
     Indication: Illness
     Dosage: 300MG QOW
     Route: 058
  2. VITAMIN C [Concomitant]
     Active Substance: ASCORBIC ACID
  3. BENICAR HCT [Concomitant]
     Active Substance: HYDROCHLOROTHIAZIDE\OLMESARTAN MEDOXOMIL
  4. VITAMIN D3 [Concomitant]
     Active Substance: CHOLECALCIFEROL
  5. SPIRIVA RESPIMAT [Concomitant]
     Active Substance: TIOTROPIUM BROMIDE
  6. MUCINEX [Concomitant]
     Active Substance: GUAIFENESIN
  7. MONTELUKAST SODIUM [Concomitant]
     Active Substance: MONTELUKAST\MONTELUKAST SODIUM
  8. PREDNISONE [Concomitant]
     Active Substance: PREDNISONE
  9. AZITHROMYCIN [Concomitant]
     Active Substance: AZITHROMYCIN
  10. BREO ELLIPTA [Concomitant]
     Active Substance: FLUTICASONE FUROATE\VILANTEROL TRIFENATATE

REACTIONS (4)
  - Condition aggravated [Not Recovered/Not Resolved]
  - Cough [Not Recovered/Not Resolved]
  - Wheezing [Not Recovered/Not Resolved]
  - Drug ineffective [Unknown]
